FAERS Safety Report 8591520-7 (Version None)
Quarter: 2012Q2

REPORT INFORMATION
  Report Type: 
  Country: None (occurrence: None)
  Receive Date: 20120423
  Receipt Date: 20100727
  Transmission Date: 20120825
  Serious: Yes (Hospitalization, Other)
  Sender: FDA-Public Use
  Company Number: PHHY2010US49055

PATIENT
  Age: 65 Year
  Sex: Male
  Weight: 79 kg

DRUGS (6)
  1. NIASPAN [Suspect]
     Indication: HIGH DENSITY LIPOPROTEIN DECREASED
     Dosage: ORAL
     Route: 048
  2. SIMVASTATIN [Concomitant]
  3. CLOPIDOGREL [Concomitant]
  4. ASPIRIN [Concomitant]
  5. NEBIVOLOL HYDROCHLORIDE [Concomitant]
  6. LOPRESSOR [Suspect]
     Indication: HYPERTENSION
     Dosage: ORAL
     Route: 048
     Dates: start: 20090801, end: 20100401

REACTIONS (7)
  - MIDDLE INSOMNIA [None]
  - HYPOTENSION [None]
  - DIZZINESS [None]
  - FLUSHING [None]
  - NAUSEA [None]
  - ERYTHEMA [None]
  - FATIGUE [None]
